FAERS Safety Report 14393247 (Version 3)
Quarter: 2018Q1

REPORT INFORMATION
  Report Type: Report from Study
  Country: CA (occurrence: CA)
  Receive Date: 20180116
  Receipt Date: 20180129
  Transmission Date: 20180509
  Serious: Yes (Other)
  Sender: FDA-Public Use
  Company Number: CA-GLAXOSMITHKLINE-CA2018GSK005778

PATIENT
  Age: 61 Year
  Sex: Female

DRUGS (12)
  1. DICLOFENAC [Suspect]
     Active Substance: DICLOFENAC
     Indication: PRODUCT USED FOR UNKNOWN INDICATION
  2. COSENTYX [Suspect]
     Active Substance: SECUKINUMAB
     Indication: PSORIATIC ARTHROPATHY
     Dosage: 300 MG, QMO
     Route: 058
     Dates: start: 20171011
  3. SULFASALAZINE. [Concomitant]
     Active Substance: SULFASALAZINE
  4. IBUPROFEN. [Concomitant]
     Active Substance: IBUPROFEN
  5. DILAUDID [Concomitant]
     Active Substance: HYDROMORPHONE HYDROCHLORIDE
     Dosage: 4 MG, UNK
  6. ENBREL [Concomitant]
     Active Substance: ETANERCEPT
  7. HUMIRA [Concomitant]
     Active Substance: ADALIMUMAB
  8. METHOTREXATE. [Concomitant]
     Active Substance: METHOTREXATE
  9. PREGABALIN. [Concomitant]
     Active Substance: PREGABALIN
  10. COSENTYX [Suspect]
     Active Substance: SECUKINUMAB
     Indication: PSORIASIS
     Dosage: UNK
     Route: 058
     Dates: start: 20171208
  11. COSENTYX [Suspect]
     Active Substance: SECUKINUMAB
     Dosage: UNK
     Route: 042
     Dates: start: 20180117
  12. OTEZLA [Concomitant]
     Active Substance: APREMILAST

REACTIONS (3)
  - Lower respiratory tract infection [Recovered/Resolved]
  - Hot flush [Not Recovered/Not Resolved]
  - Inappropriate schedule of drug administration [Unknown]

NARRATIVE: CASE EVENT DATE: 201710
